FAERS Safety Report 25254177 (Version 1)
Quarter: 2025Q2

REPORT INFORMATION
  Report Type: Spontaneous
  Country: SG (occurrence: SG)
  Receive Date: 20250430
  Receipt Date: 20250430
  Transmission Date: 20250717
  Serious: Yes (Death)
  Sender: ROCHE
  Company Number: SG-ROCHE-10000270400

PATIENT
  Age: 66 Year
  Sex: Female

DRUGS (2)
  1. AVASTIN [Suspect]
     Active Substance: BEVACIZUMAB
     Indication: Cervix carcinoma
     Route: 065
  2. AVASTIN [Suspect]
     Active Substance: BEVACIZUMAB
     Indication: Neoplasm

REACTIONS (1)
  - Death [Fatal]

NARRATIVE: CASE EVENT DATE: 20220729
